FAERS Safety Report 18238099 (Version 1)
Quarter: 2020Q3

REPORT INFORMATION
  Report Type: Spontaneous
  Country: GB (occurrence: GB)
  Receive Date: 20200907
  Receipt Date: 20200907
  Transmission Date: 20201103
  Serious: Yes (Other)
  Sender: FDA-Public Use
  Company Number: GB-TEVA-2020-GB-1823562

PATIENT
  Age: 21 Year
  Sex: Female
  Weight: 58.06 kg

DRUGS (1)
  1. METOCLOPRAMIDE. [Suspect]
     Active Substance: METOCLOPRAMIDE
     Indication: NAUSEA
     Route: 048
     Dates: start: 20171020, end: 20171021

REACTIONS (5)
  - Agitation [Recovered/Resolved with Sequelae]
  - Restlessness [Unknown]
  - Feeling of despair [Unknown]
  - Suicidal ideation [Unknown]
  - Panic reaction [Unknown]

NARRATIVE: CASE EVENT DATE: 20171021
